FAERS Safety Report 11097794 (Version 2)
Quarter: 2015Q3

REPORT INFORMATION
  Report Type: Spontaneous
  Country: US (occurrence: US)
  Receive Date: 20150507
  Receipt Date: 20150811
  Transmission Date: 20151125
  Serious: Yes (Hospitalization)
  Sender: FDA-Public Use
  Company Number: US-PFIZER INC-2015148273

PATIENT
  Age: 66 Year
  Sex: Female

DRUGS (2)
  1. DILANTIN [Suspect]
     Active Substance: PHENYTOIN
     Indication: PAIN
     Dosage: UNK
     Dates: start: 2015, end: 2015
  2. DILANTIN [Suspect]
     Active Substance: PHENYTOIN
     Indication: TRIGEMINAL NEURALGIA

REACTIONS (3)
  - Oral infection [Unknown]
  - Loose tooth [Not Recovered/Not Resolved]
  - Gingival swelling [Not Recovered/Not Resolved]

NARRATIVE: CASE EVENT DATE: 201502
